FAERS Safety Report 14585260 (Version 1)
Quarter: 2018Q1

REPORT INFORMATION
  Report Type: Spontaneous
  Country: US (occurrence: US)
  Receive Date: 20180301
  Receipt Date: 20180301
  Transmission Date: 20180509
  Serious: No
  Sender: FDA-Public Use
  Company Number: PHEH2018US008117

PATIENT
  Sex: Male
  Weight: 47.6 kg

DRUGS (1)
  1. TACROLIMUS. [Suspect]
     Active Substance: TACROLIMUS
     Indication: ECZEMA
     Dosage: UNK
     Route: 065
     Dates: start: 20170706

REACTIONS (1)
  - Dark circles under eyes [Not Recovered/Not Resolved]
